FAERS Safety Report 8499424-5 (Version None)
Quarter: 2012Q2

REPORT INFORMATION
  Report Type: 
  Country: None (occurrence: None)
  Receive Date: 20120405
  Receipt Date: 20100216
  Transmission Date: 20120825
  Serious: Yes (Disabling)
  Sender: FDA-Public Use
  Company Number: PHEH2010US02557

PATIENT
  Sex: Female

DRUGS (1)
  1. RECLAST [Suspect]
     Indication: OSTEOPOROSIS
     Dosage: 5 MG, ONCE/SINGLE, INTRAVENOUS
     Route: 042
     Dates: start: 20100125, end: 20100125

REACTIONS (7)
  - VOMITING [None]
  - ASTHENIA [None]
  - NAUSEA [None]
  - FALL [None]
  - RENAL FAILURE ACUTE [None]
  - TREMOR [None]
  - MYALGIA [None]
